FAERS Safety Report 24318839 (Version 2)
Quarter: 2024Q4

REPORT INFORMATION
  Report Type: Spontaneous
  Country: US (occurrence: US)
  Receive Date: 20240913
  Receipt Date: 20241017
  Transmission Date: 20250115
  Serious: No
  Sender: MYLAN
  Company Number: US-MYLANLABS-2024M1082789

PATIENT
  Age: 71 Year
  Sex: Female

DRUGS (2)
  1. BREYNA [Suspect]
     Active Substance: BUDESONIDE\FORMOTEROL FUMARATE
     Indication: Asthma
     Dosage: 160/4.5 MICROGRAM, QD (ONE PUFF A DAY)
     Route: 055
     Dates: start: 20240622
  2. BREYNA [Suspect]
     Active Substance: BUDESONIDE\FORMOTEROL FUMARATE
     Dosage: 160/4.5 MICROGRAM, QOD (EVERY OTHER DAY)
     Route: 055
     Dates: start: 20240622

REACTIONS (2)
  - Device delivery system issue [Unknown]
  - Inappropriate schedule of product administration [Unknown]
